FAERS Safety Report 8323102-6 (Version None)
Quarter: 2012Q2

REPORT INFORMATION
  Report Type: 
  Country: None (occurrence: None)
  Receive Date: 20120430
  Receipt Date: 20120421
  Transmission Date: 20120825
  Serious: Yes (Hospitalization)
  Sender: FDA-Public Use
  Company Number: US-PFIZER INC-2012098909

PATIENT
  Sex: Male

DRUGS (3)
  1. TEMSIROLIMUS [Suspect]
     Indication: SQUAMOUS CELL CARCINOMA
     Dosage: UNK
     Dates: start: 20120112, end: 20120405
  2. CARBOPLATIN [Suspect]
     Indication: SQUAMOUS CELL CARCINOMA
     Dosage: UNK
     Dates: start: 20120112, end: 20120405
  3. PACLITAXEL [Suspect]
     Indication: SQUAMOUS CELL CARCINOMA
     Dosage: UNK
     Dates: start: 20120112, end: 20120405

REACTIONS (1)
  - PNEUMONIA [None]
